FAERS Safety Report 20368091 (Version 1)
Quarter: 2022Q1

REPORT INFORMATION
  Report Type: Spontaneous
  Country: US (occurrence: US)
  Receive Date: 20220124
  Receipt Date: 20220124
  Transmission Date: 20220424
  Serious: Yes (Hospitalization, Other)
  Sender: FDA-Public Use
  Company Number: US-LUPIN PHARMACEUTICALS INC.-2022-00672

PATIENT
  Age: 65 Year
  Sex: Male

DRUGS (20)
  1. LAMIVUDINE [Suspect]
     Active Substance: LAMIVUDINE
     Indication: HIV infection
     Dosage: 100 MILLIGRAM, QD
     Route: 065
  2. LAMIVUDINE [Suspect]
     Active Substance: LAMIVUDINE
     Indication: Acquired immunodeficiency syndrome
  3. MOXIFLOXACIN [Suspect]
     Active Substance: MOXIFLOXACIN
     Indication: Mycobacterium avium complex infection
     Dosage: 400 MILLIGRAM, QD
     Route: 065
  4. MOXIFLOXACIN [Suspect]
     Active Substance: MOXIFLOXACIN
     Indication: Tuberculosis
  5. RIFABUTIN [Suspect]
     Active Substance: RIFABUTIN
     Indication: Mycobacterium avium complex infection
     Dosage: 300 MILLIGRAM, QD
     Route: 065
  6. RIFABUTIN [Suspect]
     Active Substance: RIFABUTIN
     Indication: Tuberculosis
     Dosage: 150 MILLIGRAM (3 TIMES PER WEEK), DOSE DECREASED
     Route: 065
  7. TENOFOVIR DISOPROXIL PHOSPHATE [Suspect]
     Active Substance: TENOFOVIR DISOPROXIL PHOSPHATE
     Indication: HIV infection
     Dosage: UNK
     Route: 065
  8. TENOFOVIR DISOPROXIL PHOSPHATE [Suspect]
     Active Substance: TENOFOVIR DISOPROXIL PHOSPHATE
     Indication: Acquired immunodeficiency syndrome
  9. COBICISTAT\DARUNAVIR ETHANOLATE [Suspect]
     Active Substance: COBICISTAT\DARUNAVIR ETHANOLATE
     Indication: HIV infection
     Dosage: 150MG/800MG
     Route: 065
  10. COBICISTAT\DARUNAVIR ETHANOLATE [Suspect]
     Active Substance: COBICISTAT\DARUNAVIR ETHANOLATE
     Indication: Acquired immunodeficiency syndrome
  11. DOLUTEGRAVIR [Suspect]
     Active Substance: DOLUTEGRAVIR
     Indication: HIV infection
     Dosage: 50 MILLIGRAM, QD
     Route: 065
  12. DOLUTEGRAVIR [Suspect]
     Active Substance: DOLUTEGRAVIR
     Indication: Acquired immunodeficiency syndrome
  13. DAPSONE [Concomitant]
     Active Substance: DAPSONE
     Indication: Pneumocystis jirovecii pneumonia
     Dosage: UNK
     Route: 065
  14. AZITHROMYCIN [Concomitant]
     Active Substance: AZITHROMYCIN
     Indication: Prophylaxis
     Dosage: UNK (INITIAL DOSAGE NOT STATED; LATER GIVEN AT 500MG DAILY FOR THE POSSIBILITY OF TUBERCULOSIS OR RE
     Route: 065
  15. AZITHROMYCIN [Concomitant]
     Active Substance: AZITHROMYCIN
     Indication: Mycobacterium avium complex infection
     Dosage: 500 MILLIGRAM, QD
     Route: 065
  16. AZITHROMYCIN [Concomitant]
     Active Substance: AZITHROMYCIN
     Indication: Tuberculosis
  17. ETHAMBUTOL [Concomitant]
     Active Substance: ETHAMBUTOL HYDROCHLORIDE
     Indication: Mycobacterium avium complex infection
     Dosage: UNK (INITIAL DOSAGE NOT STATED. LATER, GIVEN AT 800MG DAILY FOR THE POSSIBILITY OF TUBERCULOSIS OR R
     Route: 065
  18. ETHAMBUTOL [Concomitant]
     Active Substance: ETHAMBUTOL HYDROCHLORIDE
     Indication: Tuberculosis
  19. ISONIAZID [Concomitant]
     Active Substance: ISONIAZID
     Indication: Mycobacterium avium complex infection
     Dosage: 300 MILLIGRAM, QD
     Route: 065
  20. ISONIAZID [Concomitant]
     Active Substance: ISONIAZID
     Indication: Tuberculosis

REACTIONS (8)
  - Disseminated mycobacterium avium complex infection [Unknown]
  - Chronic kidney disease [Recovering/Resolving]
  - HIV wasting syndrome [Unknown]
  - Kaposi^s sarcoma [Unknown]
  - Oral candidiasis [Unknown]
  - Blood creatinine increased [Unknown]
  - Nausea [Recovered/Resolved]
  - Vomiting [Recovered/Resolved]
